FAERS Safety Report 5261186-2 (Version None)
Quarter: 2007Q1

REPORT INFORMATION
  Report Type: 
  Country: None (occurrence: None)
  Receive Date: 20070309
  Receipt Date: 20070301
  Transmission Date: 20070707
  Serious: Yes (Other)
  Sender: FDA-Public Use
  Company Number: PT-PFIZER INC-2007009941

PATIENT
  Age: 74 Year
  Sex: Female

DRUGS (4)
  1. ZOLOFT [Suspect]
     Indication: DEPRESSION
     Route: 048
  2. RISPERDAL [Suspect]
     Indication: DEPRESSION
     Dosage: DAILY DOSE:1.5MG
     Route: 048
     Dates: start: 20070101, end: 20070201
  3. ANTITHYROID PREPARATIONS [Concomitant]
  4. ANTIHYPERTENSIVES [Concomitant]

REACTIONS (3)
  - DEAFNESS [None]
  - DELIRIUM [None]
  - PAROSMIA [None]
